FAERS Safety Report 6426778-3 (Version None)
Quarter: 2009Q4

REPORT INFORMATION
  Report Type: 
  Country: None (occurrence: None)
  Receive Date: 20091103
  Receipt Date: 20091103
  Transmission Date: 20100525
  Serious: Yes (Hospitalization)
  Sender: FDA-Public Use
  Company Number: None

PATIENT
  Age: 44 Year
  Sex: Male

DRUGS (2)
  1. NAPROXEN [Suspect]
     Indication: PAIN
     Dates: start: 20080817, end: 20090817
  2. IBUPROFEN [Suspect]
     Dosage: UNKNOWN
     Dates: start: 20090801

REACTIONS (1)
  - GASTRIC HAEMORRHAGE [None]
